FAERS Safety Report 15419544 (Version 1)
Quarter: 2018Q4

REPORT INFORMATION
  Report Type: Spontaneous
  Country: None (occurrence: US)
  Receive Date: 20180924
  Receipt Date: 20180924
  Transmission Date: 20190204
  Serious: Yes (Other)
  Sender: FDA-Public Use
  Company Number: US-AKRON, INC.-2055268

PATIENT

DRUGS (1)
  1. EPHEDRINE SULFATE INJECTION [Suspect]
     Active Substance: EPHEDRINE SULFATE

REACTIONS (2)
  - Bradycardia [Unknown]
  - Cardiac arrest [Unknown]
